FAERS Safety Report 8392605-0 (Version None)
Quarter: 2012Q2

REPORT INFORMATION
  Report Type: 
  Country: None (occurrence: None)
  Receive Date: 20120525
  Receipt Date: 20120525
  Transmission Date: 20120825
  Serious: Yes (Hospitalization)
  Sender: FDA-Public Use
  Company Number: None

PATIENT
  Age: 60 Year
  Weight: 62.3 kg

DRUGS (1)
  1. PEGINTERFERON ALFA-2A [Suspect]
     Indication: HALLUCINATIONS, MIXED
     Dosage: 180 MCG ONCE EVERY WEEK SQ
     Route: 058
     Dates: start: 20111020, end: 20120104

REACTIONS (1)
  - HALLUCINATIONS, MIXED [None]
